FAERS Safety Report 5767744-0 (Version None)
Quarter: 2008Q2

REPORT INFORMATION
  Report Type: 
  Country: None (occurrence: None)
  Receive Date: 20080612
  Receipt Date: 20080603
  Transmission Date: 20081010
  Serious: Yes (Other)
  Sender: FDA-Public Use
  Company Number: FR-PFIZER INC-2008047608

PATIENT
  Age: 83 Year
  Sex: Male

DRUGS (3)
  1. XALATAN [Suspect]
  2. COSOPT [Suspect]
     Dates: start: 20070101, end: 20070101
  3. TRUSOPT [Concomitant]

REACTIONS (5)
  - ASTHMA [None]
  - INTRAOCULAR PRESSURE INCREASED [None]
  - OCULAR HYPERAEMIA [None]
  - SCLERAL DISORDER [None]
  - VISUAL ACUITY REDUCED [None]
